FAERS Safety Report 6891844-5 (Version None)
Quarter: 2010Q3

REPORT INFORMATION
  Report Type: 
  Country: None (occurrence: None)
  Receive Date: 20100731
  Receipt Date: 20071101
  Transmission Date: 20110219
  Serious: No
  Sender: FDA-Public Use
  Company Number: US-PFIZER INC-2007092108

PATIENT
  Sex: Male
  Weight: 84.1 kg

DRUGS (7)
  1. INSPRA [Suspect]
     Indication: BLOOD ALDOSTERONE ABNORMAL
     Dates: start: 20070831
  2. CRESTOR [Concomitant]
  3. LISINOPRIL [Concomitant]
  4. NORVASC [Concomitant]
  5. TENORMIN [Concomitant]
  6. NIACIN [Concomitant]
  7. SYNTHROID [Concomitant]

REACTIONS (2)
  - ERECTILE DYSFUNCTION [None]
  - UNEVALUABLE EVENT [None]
